FAERS Safety Report 9039136 (Version 1)
Quarter: 2013Q1

REPORT INFORMATION
  Report Type: Spontaneous
  Country: US (occurrence: None)
  Receive Date: 20130123
  Receipt Date: 20130123
  Transmission Date: 20140127
  Serious: No
  Sender: FDA-Public Use
  Company Number: None

PATIENT
  Sex: Male
  Weight: 94 kg

DRUGS (3)
  1. FLUOROURACIL [Suspect]
     Dates: start: 20120621
  2. LEUCOVORIN CALCIUM [Suspect]
     Dates: start: 20120621
  3. OXALIPLATIN [Suspect]

REACTIONS (1)
  - Neutrophil count abnormal [None]
